FAERS Safety Report 20443740 (Version 1)
Quarter: 2022Q1

REPORT INFORMATION
  Report Type: Spontaneous
  Country: GB (occurrence: GB)
  Receive Date: 20220208
  Receipt Date: 20220208
  Transmission Date: 20220423
  Serious: Yes (Other)
  Sender: FDA-Public Use
  Company Number: None

PATIENT
  Age: 27 Year
  Sex: Female
  Weight: 112 kg

DRUGS (10)
  1. CIPROFLOXACIN HYDROCHLORIDE [Interacting]
     Active Substance: CIPROFLOXACIN HYDROCHLORIDE
     Indication: Kidney infection
     Dosage: 500 MG, 2X/DAY
     Route: 048
     Dates: start: 20220113
  2. CAFFEINE [Interacting]
     Active Substance: CAFFEINE
     Dosage: UNK
  3. BISOPROLOL FUMARATE [Concomitant]
     Active Substance: BISOPROLOL FUMARATE
     Indication: Ill-defined disorder
     Dosage: UNK
  4. DIAZEPAM [Concomitant]
     Active Substance: DIAZEPAM
     Indication: Ill-defined disorder
     Dosage: UNK
  5. DIHYDROCODEINE [Concomitant]
     Active Substance: DIHYDROCODEINE
     Indication: Ill-defined disorder
     Dosage: UNK
  6. OMEPRAZOLE [Concomitant]
     Active Substance: OMEPRAZOLE
     Indication: Ill-defined disorder
     Dosage: UNK
  7. PEPPERMINT OIL [MENTHA X PIPERITA ESSENTIAL OIL] [Concomitant]
     Indication: Ill-defined disorder
     Dosage: UNK
  8. PREGABALIN [Concomitant]
     Active Substance: PREGABALIN
     Indication: Ill-defined disorder
     Dosage: UNK
  9. QUETIAPINE FUMARATE [Concomitant]
     Active Substance: QUETIAPINE FUMARATE
     Indication: Ill-defined disorder
     Dosage: UNK
  10. SERTRALINE [Concomitant]
     Active Substance: SERTRALINE HYDROCHLORIDE
     Indication: Ill-defined disorder
     Dosage: UNK

REACTIONS (6)
  - Potentiating drug interaction [Not Recovered/Not Resolved]
  - Depression [Not Recovered/Not Resolved]
  - Depression suicidal [Not Recovered/Not Resolved]
  - Anxiety [Not Recovered/Not Resolved]
  - Panic attack [Unknown]
  - Off label use [Unknown]

NARRATIVE: CASE EVENT DATE: 20220113
